FAERS Safety Report 11740981 (Version 2)
Quarter: 2015Q4

REPORT INFORMATION
  Report Type: Spontaneous
  Country: FR (occurrence: FR)
  Receive Date: 20151115
  Receipt Date: 20151118
  Transmission Date: 20160304
  Serious: Yes (Hospitalization, Other)
  Sender: FDA-Public Use
  Company Number: FR-009507513-1511FRA005269

PATIENT
  Age: 87 Year
  Sex: Male

DRUGS (17)
  1. ESCITALOPRAM [Suspect]
     Active Substance: ESCITALOPRAM OXALATE
     Dosage: 1 TABLET, QPM
     Dates: start: 20150820, end: 201509
  2. BROMAZEPAM [Suspect]
     Active Substance: BROMAZEPAM
     Dosage: 0.25 TABLET, QPM
     Dates: end: 20150830
  3. EZETROL [Suspect]
     Active Substance: EZETIMIBE
     Dosage: 10 MG, QPM
     Route: 048
     Dates: end: 201509
  4. CEFEPIME [Suspect]
     Active Substance: CEFEPIME HYDROCHLORIDE
     Dosage: 2 G, Q12H
     Route: 042
     Dates: start: 20150827, end: 20150831
  5. LASILIX [Suspect]
     Active Substance: FUROSEMIDE
     Dosage: 20 MG, AT MIDDAY (DAILY)
     Route: 048
     Dates: start: 201509
  6. PYRIDOXINE (+) THIAMINE [Concomitant]
  7. IKOREL [Concomitant]
     Active Substance: NICORANDIL
     Dosage: 0.75 TABLET , QPM
     Dates: end: 201509
  8. ZOLPIDEM [Suspect]
     Active Substance: ZOLPIDEM\ZOLPIDEM TARTRATE
     Dosage: 1 TABLET, QPM
     Dates: end: 20150830
  9. FERROGRAD C (ASCORBIC ACID (+) FERROUS SULFATE) [Suspect]
     Active Substance: ASCORBIC ACID\FERROUS SULFATE
     Dosage: 1 TABLET QAM AND 1 TABLET QPM
     Dates: end: 201509
  10. KARDEGIC [Suspect]
     Active Substance: ASPIRIN LYSINE
     Dosage: 1 BAG AT MIDDAY
  11. FERROGRAD C (ASCORBIC ACID (+) FERROUS SULFATE) [Suspect]
     Active Substance: ASCORBIC ACID\FERROUS SULFATE
     Dosage: UNK
     Dates: end: 201509
  12. PRAVASTATIN [Suspect]
     Active Substance: PRAVASTATIN\PRAVASTATIN SODIUM
     Dosage: 40 MG, QPM
     Dates: end: 201509
  13. IKOREL [Concomitant]
     Active Substance: NICORANDIL
     Dosage: 0.5 TABLET QAM
     Dates: end: 201509
  14. ALDACTONE [Concomitant]
     Active Substance: SPIRONOLACTONE
     Dosage: 1 TABLET, AT MIDDAY (DAILY)
     Dates: end: 20150831
  15. CALCIPARINE [Suspect]
     Active Substance: HEPARIN CALCIUM
     Dosage: 1 INJECTION IN THE MORNING AND EVENING
     Route: 058
     Dates: end: 201509
  16. LASILIX [Suspect]
     Active Substance: FUROSEMIDE
     Dosage: UNK
     Route: 048
     Dates: end: 201509
  17. PANTOPRAZOLE [Suspect]
     Active Substance: PANTOPRAZOLE SODIUM
     Dosage: 1 TABLET, QAM
     Dates: end: 201509

REACTIONS (3)
  - Incoherent [Recovered/Resolved]
  - Confusional state [Recovered/Resolved]
  - Encephalopathy [Recovered/Resolved]

NARRATIVE: CASE EVENT DATE: 20150830
